FAERS Safety Report 7700322-2 (Version None)
Quarter: 2011Q3

REPORT INFORMATION
  Report Type: 
  Country: None (occurrence: None)
  Receive Date: 20110822
  Receipt Date: 20110812
  Transmission Date: 20111222
  Serious: Yes (Hospitalization, Other)
  Sender: FDA-Public Use
  Company Number: PHEH2005US03729

PATIENT
  Sex: Female
  Weight: 70.295 kg

DRUGS (96)
  1. NEXIUM [Concomitant]
     Dosage: 40 MG, UNK
  2. TAXOTERE [Concomitant]
  3. MIRALAX [Concomitant]
     Dosage: UNK
  4. IODOQUINOL [Concomitant]
  5. OMEPRAZOLE [Concomitant]
  6. CELEBREX [Concomitant]
  7. ZOVIRAX [Concomitant]
  8. FERROUS SULFATE TAB [Concomitant]
  9. XELODA [Concomitant]
  10. MULTI-VITAMINS [Concomitant]
  11. PROVOCHOLINE [Concomitant]
     Dosage: UNK
  12. GLYCOLAX [Concomitant]
  13. HYDROCORTISONE WITH LIDOCAINE HYDROCHLORIDE [Concomitant]
  14. ACTONEL [Concomitant]
  15. OXYCODONE HCL AND ACETAMINOPHEN [Concomitant]
  16. METRONIDAZOLE [Concomitant]
  17. MEGESTROL ACETATE [Concomitant]
  18. CEPHALEXIN [Concomitant]
  19. CLOTRIMAZOLE [Concomitant]
  20. DOXORUBICIN HCL [Concomitant]
  21. LETROZOLE [Concomitant]
  22. CIPROFLOXACIN [Concomitant]
  23. ALENDRONATE SODIUM [Suspect]
     Indication: HYPERCALCAEMIA
     Route: 042
  24. ALPRAZOLAM [Concomitant]
  25. SIMAVASTATIN [Concomitant]
  26. WELLBUTRIN XL [Concomitant]
  27. CHOLINE MAGNESIUM TRISALICYLATE [Concomitant]
  28. FLUCONAZOLE [Concomitant]
  29. MUPIROCIN [Concomitant]
  30. ETODOLAC [Concomitant]
  31. BIAFINE [Concomitant]
  32. ZOMETA [Suspect]
     Indication: BREAST CANCER METASTATIC
     Dosage: 4 MG, QMO
     Route: 042
     Dates: start: 20030901, end: 20050203
  33. FOSAMAX [Concomitant]
     Dosage: 20 MG, QD
     Route: 048
  34. ATENOLOL [Concomitant]
     Dosage: 50 MG, QD
     Route: 048
  35. PROTONIX [Concomitant]
  36. CALCIMATE PLUS [Concomitant]
  37. STOOL SOFTENER [Concomitant]
     Dosage: UNK
  38. ZOFRAN [Concomitant]
  39. COMPAZINE [Concomitant]
  40. DEXAMETHASONE [Concomitant]
  41. NYSTATIN [Concomitant]
  42. EFFEXOR XR [Concomitant]
  43. LEXAPRO [Concomitant]
  44. CITALOPRAM HYDROBROMIDE [Concomitant]
  45. METOCLOPRAMIDE [Concomitant]
  46. ZOCOR [Concomitant]
  47. NEURONTIN [Concomitant]
  48. HORMONES [Concomitant]
  49. NAVELBINE [Concomitant]
  50. GEMCITABINE [Concomitant]
  51. ARIMIDEX [Suspect]
  52. ZOLOFT [Concomitant]
     Dosage: 50 MG, UNK
  53. GEMZAR [Concomitant]
     Dosage: UNK
     Dates: start: 20050501
  54. AZITHROMYCIN [Concomitant]
  55. FUROSEMIDE [Concomitant]
  56. ONDANSETRON [Concomitant]
  57. SULFAMETHOXAZOLE AND TRIMETHOPRIM [Concomitant]
  58. PROZAC [Concomitant]
  59. METHYLPREDNISOLONE [Concomitant]
  60. TEMAZEPAM [Concomitant]
  61. LOTREL [Concomitant]
     Dosage: 5/10 MG
  62. TAMOXIFEN CITRATE [Concomitant]
     Indication: BREAST CANCER
     Dosage: 10 MG, BID
     Route: 048
     Dates: start: 20020601, end: 20030901
  63. FASLODEX [Concomitant]
     Dosage: 250 MG, QMO
     Route: 042
     Dates: start: 20040201, end: 20050301
  64. HYDROCODONE [Concomitant]
     Dosage: UNK, UNK
  65. XANAX [Concomitant]
     Dosage: 0.25 MG, UNK
  66. FOLIC ACID [Concomitant]
     Dosage: 1 MG, UNK
  67. NEULASTA [Concomitant]
  68. ZEBETA [Concomitant]
     Dosage: UNK
  69. LEVAQUIN [Concomitant]
  70. NAPROXEN [Concomitant]
  71. BUPROPION HCL [Concomitant]
  72. EVISTA [Concomitant]
  73. MOBIC [Concomitant]
  74. KYTRIL [Concomitant]
  75. PROCHLORPERAZINE [Concomitant]
  76. LIPITOR [Concomitant]
     Dosage: 40 MG, UNK
  77. AMBIEN [Concomitant]
     Dosage: 10 MG, UNK
  78. POTASSIUM CHLORIDE [Concomitant]
  79. FENTANYL [Concomitant]
  80. MORPHINE SULFATE [Concomitant]
  81. MELOXICAM [Concomitant]
  82. GABAPENTIN [Concomitant]
  83. AVELOX [Concomitant]
  84. BETAMETHASONE DIPROPIONATE W/CLOTRIMAZOLE [Concomitant]
  85. CIALIS [Concomitant]
  86. TERCONAZOLE [Concomitant]
  87. FEMARA [Concomitant]
     Dosage: 2.5 MG, BID
     Route: 048
     Dates: start: 20030901, end: 20040201
  88. PROPOXYPHENE NAPSYLATE W/ ACETAMINOPHEN [Concomitant]
  89. SILVER SULFADIAZINE [Concomitant]
  90. HYDROMORPHONE HCL [Concomitant]
  91. AROMASIN [Concomitant]
  92. MIRTAZAPINE [Concomitant]
  93. METHADONE HYDROCHLORIDE [Concomitant]
  94. LYRICA [Concomitant]
  95. PREDNISONE [Concomitant]
  96. COMPRO [Concomitant]

REACTIONS (89)
  - IMPAIRED HEALING [None]
  - INJURY [None]
  - ARTHRALGIA [None]
  - BONE PAIN [None]
  - MITRAL VALVE PROLAPSE [None]
  - POSTURE ABNORMAL [None]
  - AREFLEXIA [None]
  - RECTAL FISSURE [None]
  - EXCESSIVE GRANULATION TISSUE [None]
  - DIZZINESS [None]
  - ANGER [None]
  - PYREXIA [None]
  - BONE DISORDER [None]
  - OSTEITIS [None]
  - NEURALGIA [None]
  - OESOPHAGEAL CANDIDIASIS [None]
  - BACK PAIN [None]
  - ANAEMIA [None]
  - RECTAL ABSCESS [None]
  - BRONCHITIS [None]
  - HAEMORRHOIDS [None]
  - GINGIVAL PAIN [None]
  - ORAL MUCOSAL EXFOLIATION [None]
  - ORAL CAVITY FISTULA [None]
  - METASTASES TO BONE [None]
  - NUCLEAR MAGNETIC RESONANCE IMAGING ABNORMAL [None]
  - SEROMA [None]
  - SPINAL OSTEOARTHRITIS [None]
  - MEMORY IMPAIRMENT [None]
  - URINARY RETENTION [None]
  - ECZEMA [None]
  - ANGIOFIBROMA [None]
  - CATARACT NUCLEAR [None]
  - PAIN [None]
  - TOOTH LOSS [None]
  - ANXIETY [None]
  - TOOTHACHE [None]
  - OEDEMA PERIPHERAL [None]
  - PARAESTHESIA [None]
  - HYPOAESTHESIA [None]
  - MUSCULAR WEAKNESS [None]
  - DRY EYE [None]
  - MICTURITION URGENCY [None]
  - PROCTALGIA [None]
  - PAIN IN EXTREMITY [None]
  - BALANCE DISORDER [None]
  - RECTAL HAEMORRHAGE [None]
  - OSTEONECROSIS OF JAW [None]
  - WHITE BLOOD CELL COUNT INCREASED [None]
  - ORAL DISORDER [None]
  - OSTEOARTHRITIS [None]
  - EXOSTOSIS [None]
  - INTERVERTEBRAL DISC PROTRUSION [None]
  - CYSTOCELE [None]
  - CELLULITIS [None]
  - MALIGNANT MELANOMA [None]
  - MAJOR DEPRESSION [None]
  - CHRONIC OBSTRUCTIVE PULMONARY DISEASE [None]
  - FEAR [None]
  - EATING DISORDER [None]
  - EMOTIONAL DISTRESS [None]
  - WOUND INFECTION STAPHYLOCOCCAL [None]
  - WALKING DISABILITY [None]
  - URINARY INCONTINENCE [None]
  - STAPHYLOCOCCAL INFECTION [None]
  - INGROWING NAIL [None]
  - SEBORRHOEIC KERATOSIS [None]
  - FACE INJURY [None]
  - PERIPHERAL ARTERIAL OCCLUSIVE DISEASE [None]
  - TINNITUS [None]
  - HYPOAESTHESIA ORAL [None]
  - EYE PAIN [None]
  - CONSTIPATION [None]
  - URINARY TRACT INFECTION [None]
  - PLANTAR FASCIITIS [None]
  - LICHENOID KERATOSIS [None]
  - HAEMANGIOMA [None]
  - VARICOSE VEIN [None]
  - NIGHT SWEATS [None]
  - PHYSICAL DISABILITY [None]
  - SCAR [None]
  - TOOTH INFECTION [None]
  - DYSPNOEA [None]
  - LUMBAR RADICULOPATHY [None]
  - FAECAL INCONTINENCE [None]
  - RECTOCELE [None]
  - PURULENT DISCHARGE [None]
  - DYSPLASTIC NAEVUS [None]
  - FATIGUE [None]
